FAERS Safety Report 22014697 (Version 1)
Quarter: 2023Q1

REPORT INFORMATION
  Report Type: Spontaneous
  Country: US (occurrence: US)
  Receive Date: 20230221
  Receipt Date: 20230221
  Transmission Date: 20230418
  Serious: No
  Sender: FDA-Public Use
  Company Number: US-JNJFOC-20230227134

PATIENT
  Sex: Female

DRUGS (2)
  1. REMICADE [Suspect]
     Active Substance: INFLIXIMAB
     Indication: Product used for unknown indication
     Dosage: 2 MONTH AND 2 WEEKS,3 MONTHS,
     Route: 041
  2. REMICADE [Suspect]
     Active Substance: INFLIXIMAB
     Dosage: 2 MONTH AND 2 WEEKS,3 MONTHS,
     Route: 041

REACTIONS (3)
  - Drug resistance [Unknown]
  - Drug specific antibody [Unknown]
  - Off label use [Unknown]
